FAERS Safety Report 19755169 (Version 1)
Quarter: 2021Q3

REPORT INFORMATION
  Report Type: Spontaneous
  Country: US (occurrence: US)
  Receive Date: 20210827
  Receipt Date: 20210827
  Transmission Date: 20211014
  Serious: No
  Sender: FDA-Public Use
  Company Number: None

PATIENT
  Sex: Female

DRUGS (1)
  1. ASPIRIN 81MG [Suspect]
     Active Substance: ASPIRIN

REACTIONS (1)
  - Product commingling [None]

NARRATIVE: CASE EVENT DATE: 20210822
